FAERS Safety Report 7190900-4 (Version None)
Quarter: 2010Q4

REPORT INFORMATION
  Report Type: 
  Country: None (occurrence: None)
  Receive Date: 20101223
  Receipt Date: 20101215
  Transmission Date: 20110411
  Serious: Yes (Death, Other)
  Sender: FDA-Public Use
  Company Number: AE-GENZYME-POMP-1001257

PATIENT
  Sex: Female
  Weight: 5.2 kg

DRUGS (1)
  1. MYOZYME [Suspect]
     Indication: GLYCOGEN STORAGE DISEASE TYPE II
     Dosage: 20 MG/KG, Q2W
     Route: 042
     Dates: start: 20100429, end: 20101111

REACTIONS (2)
  - LOWER RESPIRATORY TRACT INFECTION [None]
  - PNEUMONIA [None]
